FAERS Safety Report 20531080 (Version 2)
Quarter: 2023Q2

REPORT INFORMATION
  Report Type: Spontaneous
  Country: US (occurrence: US)
  Receive Date: 20220301
  Receipt Date: 20230414
  Transmission Date: 20230721
  Serious: Yes (Disabling)
  Sender: FDA-Public Use
  Company Number: US-ORGANON-O2203USA000028

PATIENT
  Sex: Female

DRUGS (2)
  1. SINGULAIR [Suspect]
     Active Substance: MONTELUKAST SODIUM
     Indication: Asthma
     Dosage: TAKE 1 TABLET ORALLY AT BEDTIME
     Route: 048
     Dates: start: 2008, end: 2021
  2. SINGULAIR [Suspect]
     Active Substance: MONTELUKAST SODIUM
     Indication: Chronic obstructive pulmonary disease

REACTIONS (14)
  - Neuropsychiatric symptoms [Not Recovered/Not Resolved]
  - Tic [Not Recovered/Not Resolved]
  - Anxiety [Recovered/Resolved]
  - Dysphemia [Recovered/Resolved]
  - Depression [Not Recovered/Not Resolved]
  - Aggression [Not Recovered/Not Resolved]
  - Hostility [Not Recovered/Not Resolved]
  - Self-injurious ideation [Unknown]
  - Anger [Recovered/Resolved]
  - Social avoidant behaviour [Unknown]
  - Sleep disorder [Unknown]
  - Insomnia [Recovered/Resolved]
  - Product prescribing issue [Unknown]
  - Product use in unapproved indication [Unknown]

NARRATIVE: CASE EVENT DATE: 20080101
